FAERS Safety Report 7418643-X (Version None)
Quarter: 2011Q2

REPORT INFORMATION
  Report Type: 
  Country: None (occurrence: None)
  Receive Date: 20110415
  Receipt Date: 20101029
  Transmission Date: 20111010
  Serious: Yes (Other)
  Sender: FDA-Public Use
  Company Number: US-BAYER-201028047NA

PATIENT
  Age: 21 Year
  Sex: Female
  Weight: 129 kg

DRUGS (7)
  1. YAZ [Suspect]
     Indication: MENSTRUAL CYCLE MANAGEMENT
     Dosage: RECEIVED SAMPLES (4-5 PER VISIT EVERY TWO YEARS) PER PFS
     Route: 048
     Dates: start: 20061001, end: 20080101
  2. YASMIN [Suspect]
     Indication: MENSTRUAL CYCLE MANAGEMENT
     Dosage: RECEIVED SAMPLES (4-5 PER VISIT EVERY TWO YEARS) PER PFS
     Route: 048
     Dates: start: 20040701, end: 20060901
  3. AZITHROMYCIN [Concomitant]
  4. METRONIDAZOLE [Concomitant]
  5. COTRIM [Concomitant]
  6. BIAXIN [Concomitant]
  7. SULFAMETHOXAZOLE W/TRIMETHOPRIM [Concomitant]

REACTIONS (3)
  - CHOLELITHIASIS [None]
  - GALLBLADDER DISORDER [None]
  - ABDOMINAL PAIN [None]
